FAERS Safety Report 14395784 (Version 1)
Quarter: 2018Q1

REPORT INFORMATION
  Report Type: Spontaneous
  Country: US (occurrence: US)
  Receive Date: 20180116
  Receipt Date: 20180116
  Transmission Date: 20180509
  Serious: No
  Sender: FDA-Public Use
  Company Number: US-ALLERGAN-1712690US

PATIENT
  Age: 38 Year
  Sex: Female

DRUGS (3)
  1. KEPPRA [Concomitant]
     Active Substance: LEVETIRACETAM
     Indication: MIGRAINE
     Dosage: 750 MG, BID
     Route: 048
  2. IBUPROFEN. [Concomitant]
     Active Substance: IBUPROFEN
     Indication: HEADACHE
     Dosage: UNK, PRN
     Route: 048
  3. BOTOX [Suspect]
     Active Substance: ONABOTULINUMTOXINA
     Indication: MIGRAINE
     Dosage: UNK, SINGLE
     Route: 030
     Dates: start: 20160913, end: 20160913

REACTIONS (1)
  - Eyelid ptosis [Not Recovered/Not Resolved]

NARRATIVE: CASE EVENT DATE: 20160923
